FAERS Safety Report 4875903-4 (Version None)
Quarter: 2006Q1

REPORT INFORMATION
  Report Type: 
  Country: None (occurrence: None)
  Receive Date: 20060109
  Receipt Date: 20051230
  Transmission Date: 20060701
  Serious: Yes (Hospitalization, Other)
  Sender: FDA-Public Use
  Company Number: US-MERCK-0601USA00228

PATIENT
  Sex: Male

DRUGS (6)
  1. VIOXX [Suspect]
     Indication: CARPAL TUNNEL SYNDROME
     Route: 048
     Dates: end: 20031221
  2. VIOXX [Suspect]
     Route: 048
     Dates: start: 20031221
  3. VIOXX [Suspect]
     Route: 048
     Dates: start: 20010401
  4. VIOXX [Suspect]
     Indication: PAIN
     Route: 048
     Dates: end: 20031221
  5. VIOXX [Suspect]
     Route: 048
     Dates: start: 20031221
  6. VIOXX [Suspect]
     Route: 048
     Dates: start: 20010401

REACTIONS (4)
  - ACUTE MYOCARDIAL INFARCTION [None]
  - ARRHYTHMIA [None]
  - CORONARY ARTERY OCCLUSION [None]
  - VENTRICULAR FIBRILLATION [None]
